FAERS Safety Report 4477662-6 (Version None)
Quarter: 2004Q4

REPORT INFORMATION
  Report Type: 
  Country: None (occurrence: None)
  Receive Date: 20041013
  Receipt Date: 20040930
  Transmission Date: 20050328
  Serious: Yes (Hospitalization)
  Sender: FDA-Public Use
  Company Number: 209423

PATIENT
  Age: 35 Year
  Sex: Male
  Weight: 58 kg

DRUGS (1)
  1. RITUXAN [Suspect]
     Indication: LYMPHOMA
     Dosage: 600 MG
     Route: 042
     Dates: start: 20040906

REACTIONS (6)
  - FACIAL PALSY [None]
  - HYPERAESTHESIA [None]
  - INFUSION RELATED REACTION [None]
  - PARALYSIS [None]
  - SPEECH DISORDER [None]
  - VISUAL DISTURBANCE [None]
